FAERS Safety Report 6673764-4 (Version None)
Quarter: 2010Q2

REPORT INFORMATION
  Report Type: 
  Country: None (occurrence: None)
  Receive Date: 20100408
  Receipt Date: 20100330
  Transmission Date: 20101027
  Serious: Yes (Hospitalization)
  Sender: FDA-Public Use
  Company Number: BE-GENENTECH-300031

PATIENT
  Sex: Male
  Weight: 80 kg

DRUGS (8)
  1. MABTHERA [Suspect]
     Indication: RHEUMATOID ARTHRITIS
     Dosage: 1000 MG, Q2W
     Route: 042
     Dates: end: 20100201
  2. MABTHERA [Suspect]
     Dosage: 1000 MG, Q2W
     Route: 042
     Dates: start: 20090113, end: 20090127
  3. METHOTREXATE [Suspect]
     Indication: RHEUMATOID ARTHRITIS
     Dosage: 20 MG, 1/WEEK
     Route: 048
     Dates: start: 20061208
  4. METHOTREXATE [Suspect]
     Dosage: 10 MG, 1/WEEK
     Route: 048
     Dates: end: 20100331
  5. OCRELIZUMAB [Concomitant]
     Indication: DRUG USE FOR UNKNOWN INDICATION
     Dosage: UNK
  6. MEDROL [Concomitant]
     Indication: RHEUMATOID ARTHRITIS
     Dosage: 16 MG, UNK
     Route: 048
     Dates: start: 20060101
  7. MEDROL [Concomitant]
     Dosage: 4 MG, UNK
     Route: 048
  8. REMICADE [Concomitant]
     Indication: DRUG USE FOR UNKNOWN INDICATION
     Dosage: UNK

REACTIONS (4)
  - DYSPNOEA EXERTIONAL [None]
  - INTERSTITIAL LUNG DISEASE [None]
  - MALAISE [None]
  - PYREXIA [None]
